FAERS Safety Report 9505536 (Version 1)
Quarter: 2013Q1

REPORT INFORMATION
  Report Type: Spontaneous
  Country: US (occurrence: None)
  Receive Date: 20130220
  Receipt Date: 20130220
  Transmission Date: 20140127
  Serious: No
  Sender: FDA-Public Use
  Company Number: 1000039733

PATIENT
  Age: 69 Year
  Sex: Female

DRUGS (3)
  1. VIIBYRD (VILAZODONE HYDROCHLORIDE) [Suspect]
     Indication: DEPRESSION
     Dosage: 10 MG (10 MG, 1 IN 1 D), ORAL
     Route: 048
     Dates: start: 20121012, end: 20121018
  2. LIVIAL (TIBOLONE) (TIBOLONE) [Concomitant]
  3. REMERON (MIRTAZAPINE) (MIRTAZAPINE) [Concomitant]

REACTIONS (3)
  - Diarrhoea [None]
  - Dizziness [None]
  - Asthenia [None]
